FAERS Safety Report 9683846 (Version 1)
Quarter: 2013Q4

REPORT INFORMATION
  Report Type: Spontaneous
  Country: US (occurrence: US)
  Receive Date: 20131112
  Receipt Date: 20131112
  Transmission Date: 20140711
  Serious: No
  Sender: FDA-Public Use
  Company Number: US-MALLINCKRODT-T201304144

PATIENT
  Sex: Female

DRUGS (2)
  1. FENTANYL TRANSDERMAL SYSTEM [Suspect]
     Indication: NEUROPATHY PERIPHERAL
     Dosage: 50 UG/HR, Q 72 HRS
     Route: 062
  2. LYRICA [Concomitant]
     Dosage: UNK, TID

REACTIONS (2)
  - Salivary hypersecretion [Not Recovered/Not Resolved]
  - Tooth deposit [Not Recovered/Not Resolved]
